FAERS Safety Report 17741612 (Version 3)
Quarter: 2023Q2

REPORT INFORMATION
  Report Type: Spontaneous
  Country: DE (occurrence: DE)
  Receive Date: 20200504
  Receipt Date: 20230510
  Transmission Date: 20230721
  Serious: Yes (Life-Threatening, Hospitalization, Other)
  Sender: FDA-Public Use
  Company Number: DE-MACLEODS PHARMACEUTICALS US LTD-MAC2020026359

PATIENT

DRUGS (3)
  1. SILDENAFIL [Suspect]
     Active Substance: SILDENAFIL
     Indication: Erectile dysfunction
     Dosage: 200 MILLIGRAM, QD
     Route: 065
  2. URAPIDIL [Concomitant]
     Active Substance: URAPIDIL
     Indication: Hypertension
     Dosage: UNK
     Route: 042
  3. NIMODIPINE [Concomitant]
     Active Substance: NIMODIPINE
     Indication: Prophylaxis
     Dosage: UNK, (6 ? 60 MG/D)
     Route: 065

REACTIONS (5)
  - Subarachnoid haemorrhage [Recovered/Resolved]
  - Self-medication [Recovered/Resolved]
  - Overdose [Recovered/Resolved]
  - Thunderclap headache [Recovered/Resolved]
  - Vomiting [Recovered/Resolved]
